FAERS Safety Report 8443521-7 (Version None)
Quarter: 2012Q2

REPORT INFORMATION
  Report Type: 
  Country: None (occurrence: None)
  Receive Date: 20120618
  Receipt Date: 20120618
  Transmission Date: 20120825
  Serious: Yes (Other)
  Sender: FDA-Public Use
  Company Number: US-PFIZER INC-2012059968

PATIENT
  Sex: Female
  Weight: 79.365 kg

DRUGS (3)
  1. LIPITOR [Concomitant]
     Dosage: 20 MG, 1X/DAY
     Route: 048
  2. CHANTIX [Suspect]
     Indication: SMOKING CESSATION THERAPY
     Dosage: UNK, ALTERNATE DAY
     Route: 048
     Dates: start: 20120118
  3. LISINOPRIL AND HYDROCHLOROTHIAZIDE [Concomitant]
     Dosage: 20/12.5, 1X/DAY
     Route: 048

REACTIONS (2)
  - ANXIETY [None]
  - NERVOUSNESS [None]
